FAERS Safety Report 11177091 (Version 1)
Quarter: 2015Q2

REPORT INFORMATION
  Report Type: Spontaneous
  Country: SA (occurrence: SA)
  Receive Date: 20150610
  Receipt Date: 20150610
  Transmission Date: 20150821
  Serious: Yes (Hospitalization)
  Sender: FDA-Public Use
  Company Number: SA-SA-2015SA079037

PATIENT
  Age: 66 Year
  Sex: Female
  Weight: 64 kg

DRUGS (1)
  1. ANTI-THYMOCYTE GLOBULIN (RABBIT)/RABBIT ANTI-HUMAN THYMOCYTE IMMUNOGLOBULIN [Suspect]
     Active Substance: LAPINE T-LYMPHOCYTE IMMUNE GLOBULIN
     Route: 065
     Dates: start: 20110820

REACTIONS (5)
  - Haematoma [Recovered/Resolved]
  - Incision site haematoma [None]
  - Wound haemorrhage [None]
  - Cellulitis [Recovered/Resolved]
  - Hyponatraemia [Recovered/Resolved]

NARRATIVE: CASE EVENT DATE: 20110820
